FAERS Safety Report 22000997 (Version 1)
Quarter: 2023Q1

REPORT INFORMATION
  Report Type: Spontaneous
  Country: US (occurrence: US)
  Receive Date: 20230216
  Receipt Date: 20230216
  Transmission Date: 20230417
  Serious: Yes (Hospitalization)
  Sender: FDA-Public Use
  Company Number: US-FERRINGPH-2022FE01227

PATIENT
  Age: 48 Year
  Sex: Male
  Weight: 102 kg

DRUGS (2)
  1. DDAVP [Suspect]
     Active Substance: DESMOPRESSIN ACETATE
     Indication: Product used for unknown indication
     Dosage: 2 SPRAYS INTO ONE NOSTRIL 2X/DAY
     Route: 065
     Dates: start: 20200813
  2. DDAVP [Suspect]
     Active Substance: DESMOPRESSIN ACETATE
     Dosage: UNK
     Route: 065
     Dates: start: 20200713

REACTIONS (12)
  - Blood sodium decreased [Recovering/Resolving]
  - Pain [Unknown]
  - Chromaturia [Unknown]
  - Diarrhoea [Recovered/Resolved]
  - Dry mouth [Unknown]
  - Dehydration [Unknown]
  - Hypertension [Unknown]
  - Somnolence [Unknown]
  - Recalled product administered [Unknown]
  - Poor quality product administered [Unknown]
  - Contraindicated product prescribed [Unknown]
  - Off label use [Unknown]

NARRATIVE: CASE EVENT DATE: 20200701
